FAERS Safety Report 20942433 (Version 3)
Quarter: 2022Q3

REPORT INFORMATION
  Report Type: Report from Study
  Country: US (occurrence: US)
  Receive Date: 20220610
  Receipt Date: 20220913
  Transmission Date: 20221026
  Serious: Yes (Hospitalization, Other)
  Sender: FDA-Public Use
  Company Number: US-CELGENE-USA-20220201612

PATIENT
  Age: 56 Year
  Sex: Female
  Weight: 59.4 kg

DRUGS (8)
  1. REVLIMID [Suspect]
     Active Substance: LENALIDOMIDE
     Indication: Plasma cell myeloma
     Dosage: 15 MILLIGRAM
     Route: 048
     Dates: start: 201612
  2. REVLIMID [Suspect]
     Active Substance: LENALIDOMIDE
     Indication: Plasma cell myeloma in remission
     Dosage: 15 MILLIGRAM
     Route: 048
     Dates: start: 201707
  3. REVLIMID [Suspect]
     Active Substance: LENALIDOMIDE
     Dosage: 15 MILLIGRAM
     Route: 048
     Dates: start: 20171220
  4. REVLIMID [Suspect]
     Active Substance: LENALIDOMIDE
     Dosage: 10 MILLIGRAM
     Route: 048
     Dates: start: 201909
  5. REVLIMID [Suspect]
     Active Substance: LENALIDOMIDE
     Dosage: 5 MILLIGRAM
     Route: 048
     Dates: start: 202007
  6. REVLIMID [Suspect]
     Active Substance: LENALIDOMIDE
     Dosage: 21 OUT OF 28 DAYS
     Route: 048
     Dates: start: 20171220
  7. REVLIMID [Suspect]
     Active Substance: LENALIDOMIDE
     Dosage: DAILY FOR 21 DAYS
     Route: 048
     Dates: start: 20171220
  8. ASPIRIN [Concomitant]
     Active Substance: ASPIRIN

REACTIONS (7)
  - Cold sweat [Not Recovered/Not Resolved]
  - Diarrhoea [Not Recovered/Not Resolved]
  - Dyspnoea [Not Recovered/Not Resolved]
  - Tremor [Not Recovered/Not Resolved]
  - Fatigue [Unknown]
  - Headache [Unknown]
  - Tooth disorder [Unknown]
